FAERS Safety Report 4277939-3 (Version None)
Quarter: 2004Q1

REPORT INFORMATION
  Report Type: 
  Country: None (occurrence: None)
  Receive Date: 20040121
  Receipt Date: 20040107
  Transmission Date: 20041129
  Serious: Yes (Hospitalization)
  Sender: FDA-Public Use
  Company Number: B0319204A

PATIENT
  Age: 39 Year
  Sex: Female

DRUGS (2)
  1. LAMIVUDINE (FORMULATION UNKNOWN)(LAMIVUDINE) [Suspect]
     Indication: HIV INFECTION
  2. STAVUDINE (FORMULATION UNKNOWN) (STAVUDINE) [Suspect]
     Indication: HIV INFECTION

REACTIONS (8)
  - ARTHRITIS [None]
  - HAEMOLYTIC ANAEMIA [None]
  - LEUKOPENIA [None]
  - MOBILITY DECREASED [None]
  - MYALGIA [None]
  - PERICARDIAL EFFUSION [None]
  - PLEURAL EFFUSION [None]
  - SYSTEMIC LUPUS ERYTHEMATOSUS [None]
